FAERS Safety Report 12360725 (Version 1)
Quarter: 2016Q2

REPORT INFORMATION
  Report Type: Report from Study
  Country: NL (occurrence: NL)
  Receive Date: 20160512
  Receipt Date: 20160512
  Transmission Date: 20160815
  Serious: Yes (Hospitalization, Other)
  Sender: FDA-Public Use
  Company Number: NL-TEVA-658183ISR

PATIENT
  Age: 69 Year
  Sex: Female

DRUGS (10)
  1. OMEPRAZOL 20 MG [Concomitant]
     Active Substance: OMEPRAZOLE
     Dosage: 20 MILLIGRAM DAILY;
  2. COPAXONE [Suspect]
     Active Substance: GLATIRAMER ACETATE
     Indication: MULTIPLE SCLEROSIS
     Dosage: 20 MILLIGRAM DAILY;
     Route: 058
     Dates: start: 20150626
  3. CYCLOPHOSPHAMIDE. [Suspect]
     Active Substance: CYCLOPHOSPHAMIDE
     Route: 065
  4. FLUOURARACIL [Suspect]
     Active Substance: FLUOROURACIL
     Route: 065
  5. PERONDIPRIL 4 MG [Concomitant]
     Dosage: 4 MILLIGRAM DAILY;
  6. EZETROL [Concomitant]
     Active Substance: EZETIMIBE
  7. CIPROFLOXACINE 500 MG [Concomitant]
     Dosage: 1500 MILLIGRAM DAILY;
  8. LASIX 25 MG [Concomitant]
     Dosage: 25 MILLIGRAM DAILY;
  9. DEXAMETHASON [Concomitant]
     Active Substance: DEXAMETHASONE
  10. EPIRUBICIN [Suspect]
     Active Substance: EPIRUBICIN
     Route: 065

REACTIONS (5)
  - Fungaemia [Recovered/Resolved]
  - Bacteraemia [Recovered/Resolved]
  - Malaise [Recovered/Resolved]
  - Pyrexia [Recovered/Resolved]
  - General physical health deterioration [Recovered/Resolved]

NARRATIVE: CASE EVENT DATE: 20160405
